FAERS Safety Report 7024958-X (Version None)
Quarter: 2010Q4

REPORT INFORMATION
  Report Type: 
  Country: None (occurrence: None)
  Receive Date: 20101001
  Receipt Date: 20100930
  Transmission Date: 20110411
  Serious: Yes (Hospitalization)
  Sender: FDA-Public Use
  Company Number: FR-BRISTOL-MYERS SQUIBB COMPANY-15311764

PATIENT
  Age: 85 Year
  Sex: Female

DRUGS (7)
  1. COAPROVEL TABS 150MG/12.5MG [Suspect]
     Dosage: 1 DF: 1 TABLET
     Route: 048
     Dates: end: 20100817
  2. CYMBALTA [Suspect]
     Dosage: 60MG 1 DF: 1 CAPS
     Route: 048
     Dates: start: 20100810, end: 20100818
  3. PROZAC [Suspect]
     Dosage: 20 MG  1 DF: 1 CAPS
     Route: 048
     Dates: start: 20100801, end: 20100810
  4. CELECTOL [Concomitant]
  5. KARDEGIC [Concomitant]
  6. CARTREX [Concomitant]
  7. SYMBICORT [Concomitant]

REACTIONS (3)
  - DEATH OF RELATIVE [None]
  - GENERAL PHYSICAL HEALTH DETERIORATION [None]
  - HYPONATRAEMIA [None]
